FAERS Safety Report 7621688-8 (Version None)
Quarter: 2011Q3

REPORT INFORMATION
  Report Type: 
  Country: None (occurrence: None)
  Receive Date: 20110719
  Receipt Date: 20110712
  Transmission Date: 20111222
  Serious: Yes (Disabling)
  Sender: FDA-Public Use
  Company Number: NL-ABBOTT-11P-114-0838031-00

PATIENT
  Sex: Female

DRUGS (2)
  1. ACITRETIN [Concomitant]
     Indication: PUSTULAR PSORIASIS
     Dates: start: 20091026
  2. HUMIRA [Suspect]
     Indication: PSORIATIC ARTHROPATHY
     Dates: start: 20090801, end: 20110312

REACTIONS (4)
  - PUSTULAR PSORIASIS [None]
  - OPTIC NEURITIS [None]
  - OPEN ANGLE GLAUCOMA [None]
  - VISUAL FIELD DEFECT [None]
